FAERS Safety Report 20369706 (Version 3)
Quarter: 2023Q4

REPORT INFORMATION
  Report Type: Spontaneous
  Country: US (occurrence: US)
  Receive Date: 20220124
  Receipt Date: 20231121
  Transmission Date: 20240110
  Serious: Yes (Other)
  Sender: FDA-Public Use
  Company Number: US-PFIZER INC-202200048837

PATIENT
  Age: 80 Year
  Sex: Female

DRUGS (2)
  1. IBRANCE [Suspect]
     Active Substance: PALBOCICLIB
     Dosage: 125 MG
     Dates: start: 20170119, end: 20220104
  2. IBRANCE [Suspect]
     Active Substance: PALBOCICLIB
     Dosage: 100 MG, CYCLIC (TAKE 1 TABLET DAILY ON DAYS 1-21 OF A 28 DAY CYCLE (3 WEEKS ON AND 1 WEEK OFF))
     Route: 048
     Dates: start: 20231113

REACTIONS (8)
  - Diarrhoea haemorrhagic [Unknown]
  - Influenza [Unknown]
  - White blood cell count decreased [Unknown]
  - Lacrimation increased [Unknown]
  - Pruritus [Unknown]
  - Fatigue [Unknown]
  - Alopecia [Unknown]
  - Dyspnoea [Unknown]
